FAERS Safety Report 15894807 (Version 1)
Quarter: 2019Q1

REPORT INFORMATION
  Report Type: Spontaneous
  Country: US (occurrence: US)
  Receive Date: 20190131
  Receipt Date: 20190131
  Transmission Date: 20190417
  Serious: Yes (Other)
  Sender: FDA-Public Use
  Company Number: US-ROCHE-2252526

PATIENT
  Sex: Male

DRUGS (3)
  1. ESBRIET [Suspect]
     Active Substance: PIRFENIDONE
     Indication: IDIOPATHIC PULMONARY FIBROSIS
     Dosage: 2 TABLETS 3 TIMES A DAY ;ONGOING: UNKNOWN
     Route: 048
     Dates: start: 20180730
  2. ESBRIET [Suspect]
     Active Substance: PIRFENIDONE
     Route: 048
  3. METOPROLOL. [Concomitant]
     Active Substance: METOPROLOL

REACTIONS (6)
  - Fatigue [Unknown]
  - Discomfort [Unknown]
  - Asthenia [Unknown]
  - Decreased appetite [Unknown]
  - Faeces soft [Unknown]
  - Epistaxis [Unknown]

NARRATIVE: CASE EVENT DATE: 20180830
